FAERS Safety Report 7303896-9 (Version None)
Quarter: 2011Q1

REPORT INFORMATION
  Report Type: 
  Country: None (occurrence: None)
  Receive Date: 20110221
  Receipt Date: 20110214
  Transmission Date: 20110831
  Serious: Yes (Hospitalization)
  Sender: FDA-Public Use
  Company Number: B0700900A

PATIENT
  Sex: Female

DRUGS (5)
  1. BISOPROLOL [Concomitant]
  2. SIMVASTATIN [Concomitant]
  3. ACETYLCYSTEINE [Concomitant]
  4. TICLOPIDINE HCL [Concomitant]
  5. AMOXICILLIN AND CLAVULANATE POTASSIUM [Suspect]
     Indication: EAR INFECTION
     Dosage: 1000MG PER DAY
     Route: 048
     Dates: start: 20101129, end: 20101129

REACTIONS (2)
  - CHOKING [None]
  - ANAPHYLACTIC SHOCK [None]
